FAERS Safety Report 5233854-X (Version None)
Quarter: 2007Q1

REPORT INFORMATION
  Report Type: 
  Country: None (occurrence: None)
  Receive Date: 20061208
  Receipt Date: 20060316
  Transmission Date: 20070707
  Serious: Yes (Other)
  Sender: FDA-Public Use
  Company Number: 2006UW04484

PATIENT
  Age: 44 Year
  Sex: Female
  Weight: 77.11 kg

DRUGS (7)
  1. CRESTOR [Suspect]
     Indication: BLOOD CHOLESTEROL INCREASED
     Dosage: 5 MG DAILY PO
     Route: 048
     Dates: start: 20060315
  2. PROZAC [Concomitant]
  3. THYROID MEDICINE [Concomitant]
  4. CARDIZEM [Concomitant]
  5. LASIX [Concomitant]
  6. ALLEGRA [Concomitant]
  7. ASPIRIN [Concomitant]

REACTIONS (1)
  - DYSURIA [None]
